FAERS Safety Report 25300890 (Version 5)
Quarter: 2025Q4

REPORT INFORMATION
  Report Type: Spontaneous
  Country: AU (occurrence: AU)
  Receive Date: 20250512
  Receipt Date: 20251229
  Transmission Date: 20260118
  Serious: Yes (Hospitalization, Other)
  Sender: MYLAN
  Company Number: AU-MYLANLABS-2024M1111212

PATIENT
  Sex: Male

DRUGS (7)
  1. CLOZARIL [Suspect]
     Active Substance: CLOZAPINE
     Indication: Schizophrenia
     Dosage: UNK
     Route: 061
  2. CLOZARIL [Suspect]
     Active Substance: CLOZAPINE
     Dosage: 250 MILLIGRAM, PM
     Route: 061
     Dates: start: 20241213, end: 202504
  3. APIXABAN [Concomitant]
     Active Substance: APIXABAN
     Dosage: 5 MILLIGRAM, BID
     Route: 061
  4. CHOLECALCIFEROL [Concomitant]
     Active Substance: CHOLECALCIFEROL
     Dosage: UNK UNK, AM ( COLECALCIFEROL 1000 UNITS MANE)
  5. METOPROLOL [Concomitant]
     Active Substance: METOPROLOL
     Dosage: 25 MILLIGRAM, BID
     Route: 061
  6. DOCUSATE SODIUM [Concomitant]
     Active Substance: DOCUSATE SODIUM
     Dosage: 2 DOSAGE FORM, BID
     Route: 061
  7. RISPERIDONE [Concomitant]
     Active Substance: RISPERIDONE
     Dosage: 37.5 MILLIGRAM, Q2W

REACTIONS (10)
  - Malaise [Unknown]
  - Withdrawal catatonia [Unknown]
  - Myocarditis [Recovered/Resolved]
  - Heart failure with reduced ejection fraction [Unknown]
  - Atrial fibrillation [Unknown]
  - Pneumonia [Unknown]
  - Urinary retention [Unknown]
  - Troponin increased [Unknown]
  - Treatment noncompliance [Unknown]
  - Constipation [Unknown]

NARRATIVE: CASE EVENT DATE: 20250101
